FAERS Safety Report 6767552-8 (Version None)
Quarter: 2010Q2

REPORT INFORMATION
  Report Type: 
  Country: None (occurrence: None)
  Receive Date: 20100614
  Receipt Date: 20100604
  Transmission Date: 20101027
  Serious: Yes (Death, Disabling)
  Sender: FDA-Public Use
  Company Number: CZ-AMGEN-KDC410097

PATIENT
  Sex: Male

DRUGS (4)
  1. ROMIPLOSTIM [Suspect]
     Indication: IDIOPATHIC THROMBOCYTOPENIC PURPURA
     Route: 058
     Dates: start: 20091125, end: 20100421
  2. ROMIPLOSTIM [Suspect]
     Dates: start: 20100407, end: 20100407
  3. ROMIPLOSTIM [Suspect]
     Dates: start: 20100414, end: 20100414
  4. ROMIPLOSTIM [Suspect]
     Dates: start: 20100421, end: 20100421

REACTIONS (3)
  - MALIGNANT NEOPLASM PROGRESSION [None]
  - MYELOFIBROSIS [None]
  - RENAL IMPAIRMENT [None]
